FAERS Safety Report 8508427 (Version 2)
Quarter: 2012Q4

REPORT INFORMATION
  Report Type: 
  Country: US (occurrence: US)
  Receive Date: 20120412
  Receipt Date: 20121018
  Transmission Date: 20130627
  Serious: No
  Sender: FDA-Public Use
  Company Number: US-ASTRAZENECA-2011SE12739

PATIENT
  Age: 65 Year
  Sex: Female

DRUGS (5)
  1. NEXIUM [Suspect]
     Route: 048
  2. TOPROL XL [Suspect]
     Route: 048
  3. METOPROLOL [Suspect]
     Route: 048
  4. PEPCID [Concomitant]
  5. ZEGERID [Concomitant]

REACTIONS (4)
  - Abdominal discomfort [Unknown]
  - Headache [Unknown]
  - Hypertension [Unknown]
  - Drug dose omission [Unknown]
